FAERS Safety Report 11213844 (Version 1)
Quarter: 2015Q2

REPORT INFORMATION
  Report Type: Spontaneous
  Country: US (occurrence: US)
  Receive Date: 20150623
  Receipt Date: 20150623
  Transmission Date: 20150821
  Serious: Yes (Other)
  Sender: FDA-Public Use
  Company Number: US-TEVA-571618USA

PATIENT
  Sex: Female

DRUGS (1)
  1. COPAXONE [Suspect]
     Active Substance: GLATIRAMER ACETATE
     Indication: MULTIPLE SCLEROSIS
     Route: 065
     Dates: start: 20131221

REACTIONS (7)
  - Product use issue [Unknown]
  - Primary progressive multiple sclerosis [Unknown]
  - Off label use [Unknown]
  - Gait disturbance [Unknown]
  - Amnesia [Unknown]
  - Secondary progressive multiple sclerosis [Unknown]
  - Tremor [Unknown]
